FAERS Safety Report 23222854 (Version 1)
Quarter: 2023Q4

REPORT INFORMATION
  Report Type: Spontaneous
  Country: IN (occurrence: None)
  Receive Date: 20231123
  Receipt Date: 20231123
  Transmission Date: 20240110
  Serious: Yes (Other)
  Sender: FDA-Public Use
  Company Number: 2023A261403

PATIENT
  Age: 69 Year
  Sex: Male

DRUGS (4)
  1. OSIMERTINIB [Suspect]
     Active Substance: OSIMERTINIB
     Indication: Lung adenocarcinoma
     Route: 048
  2. ALECTINIB [Concomitant]
     Active Substance: ALECTINIB
     Indication: Lung adenocarcinoma
  3. PEMETREXED [Concomitant]
     Active Substance: PEMETREXED
     Indication: Lung adenocarcinoma
     Dosage: 3 CYCLES 3-WEEKLY
  4. CARBOPLATIN [Concomitant]
     Active Substance: CARBOPLATIN
     Indication: Lung adenocarcinoma
     Dosage: 3 CYCLES 3-WEEKLY

REACTIONS (5)
  - Malignant neoplasm progression [Unknown]
  - Drug resistance [Unknown]
  - ALK gene rearrangement positive [Unknown]
  - Acquired gene mutation [Unknown]
  - Deep vein thrombosis [Unknown]
